FAERS Safety Report 7907150-3 (Version None)
Quarter: 2011Q4

REPORT INFORMATION
  Report Type: 
  Country: None (occurrence: None)
  Receive Date: 20111110
  Receipt Date: 20111103
  Transmission Date: 20120403
  Serious: Yes (Hospitalization)
  Sender: FDA-Public Use
  Company Number: US-ABBOTT-11P-163-0871339-00

PATIENT
  Sex: Male
  Weight: 99.88 kg

DRUGS (5)
  1. METHOTREXATE [Concomitant]
     Indication: RHEUMATOID ARTHRITIS
  2. FOLIC ACID [Concomitant]
     Indication: VITAMIN SUPPLEMENTATION
  3. IBUPROFEN [Concomitant]
     Indication: ARTHRALGIA
  4. HUMIRA [Suspect]
     Indication: RHEUMATOID ARTHRITIS
  5. NAPROXEN [Concomitant]
     Indication: ARTHRALGIA

REACTIONS (7)
  - MUSCLE STRAIN [None]
  - DEVICE LEAKAGE [None]
  - NERVE INJURY [None]
  - SMALL CELL LUNG CANCER STAGE UNSPECIFIED [None]
  - DYSPNOEA [None]
  - CHEST PAIN [None]
  - BRONCHIAL CARCINOMA [None]
